FAERS Safety Report 5026083-6 (Version None)
Quarter: 2006Q2

REPORT INFORMATION
  Report Type: 
  Country: None (occurrence: None)
  Receive Date: 20060614
  Receipt Date: 20060515
  Transmission Date: 20061013
  Serious: Yes (Other)
  Sender: FDA-Public Use
  Company Number: PHEH2006US07595

PATIENT
  Age: 53 Year
  Sex: Female
  Weight: 84.353 kg

DRUGS (3)
  1. ZOMETA [Suspect]
     Indication: BREAST CANCER METASTATIC
     Dosage: 4 UNK, EVERY 8 WEEKS
     Dates: start: 20031204, end: 20060426
  2. FASLODEX [Concomitant]
     Dosage: 250 MG, UNK
     Route: 030
  3. ARANESP [Concomitant]
     Dosage: 300 UNK, UNK
     Route: 058

REACTIONS (1)
  - OSTEONECROSIS [None]
